FAERS Safety Report 13592148 (Version 2)
Quarter: 2017Q2

REPORT INFORMATION
  Report Type: Spontaneous
  Country: FR (occurrence: FR)
  Receive Date: 20170529
  Receipt Date: 20170622
  Transmission Date: 20170830
  Serious: Yes (Other)
  Sender: FDA-Public Use
  Company Number: FR-ABBVIE-17P-056-1989427-00

PATIENT
  Sex: Female

DRUGS (1)
  1. DEPAKINE [Suspect]
     Active Substance: VALPROATE SODIUM
     Indication: MATERNAL EXPOSURE TIMING UNSPECIFIED
     Route: 064

REACTIONS (9)
  - Adjustment disorder with mixed disturbance of emotion and conduct [Not Recovered/Not Resolved]
  - Enuresis [Not Recovered/Not Resolved]
  - Speech disorder [Not Recovered/Not Resolved]
  - Abnormal behaviour [Not Recovered/Not Resolved]
  - Foetal exposure during pregnancy [Unknown]
  - Disturbance in attention [Not Recovered/Not Resolved]
  - Auditory disorder [Recovered/Resolved]
  - Developmental delay [Recovered/Resolved]
  - Neurodevelopmental disorder [Recovered/Resolved]
